FAERS Safety Report 7002362-8 (Version None)
Quarter: 2010Q3

REPORT INFORMATION
  Report Type: 
  Country: None (occurrence: None)
  Receive Date: 20100920
  Receipt Date: 20100108
  Transmission Date: 20110219
  Serious: No
  Sender: FDA-Public Use
  Company Number: US-ASTRAZENECA-2009SE31144

PATIENT
  Age: 16 Year
  Sex: Male
  Weight: 85.3 kg

DRUGS (1)
  1. SEROQUEL XR [Suspect]
     Indication: TOURETTE'S DISORDER
     Route: 048
     Dates: start: 20090624

REACTIONS (2)
  - ARTHRALGIA [None]
  - BLOOD URIC ACID INCREASED [None]
